FAERS Safety Report 10475075 (Version 6)
Quarter: 2015Q2

REPORT INFORMATION
  Report Type: Report from Study
  Country: JP (occurrence: JP)
  Receive Date: 20140925
  Receipt Date: 20150413
  Transmission Date: 20150821
  Serious: Yes (Hospitalization)
  Sender: FDA-Public Use
  Company Number: JP-PFIZER INC-2014259998

PATIENT
  Age: 55 Year
  Sex: Male
  Weight: 65.5 kg

DRUGS (9)
  1. XALKORI [Suspect]
     Active Substance: CRIZOTINIB
     Dosage: 200 MG, 2X/DAY
     Route: 048
     Dates: start: 20140610, end: 20140615
  2. OXYCODONE [Concomitant]
     Active Substance: OXYCODONE
     Dosage: 20 MG, 2X/DAY
     Route: 048
     Dates: start: 20140525
  3. CALCIUM L-ASPARTATE [Concomitant]
     Dosage: 600 MG, 3X/DAY
     Route: 048
     Dates: end: 20140710
  4. RANMARK [Suspect]
     Active Substance: DENOSUMAB
     Dosage: 120 MG, 1X/DAY
     Route: 058
     Dates: start: 20140404, end: 20140502
  5. OXYCODONE [Concomitant]
     Active Substance: OXYCODONE
     Dosage: 10 MG, 2X/DAY
     Route: 048
     Dates: end: 20140524
  6. XALKORI [Suspect]
     Active Substance: CRIZOTINIB
     Indication: NON-SMALL CELL LUNG CANCER
     Dosage: 250 MG, 2X/DAY
     Route: 048
     Dates: start: 20140516, end: 20140602
  7. URSODEOXYCHOLIC ACID [Concomitant]
     Active Substance: URSODIOL
     Indication: LIVER DISORDER
     Dosage: 100 MG, 3X/DAY
     Route: 048
     Dates: start: 20130809
  8. CALCIUM L-ASPARTATE [Concomitant]
     Dosage: 400 MG, 3X/DAY
     Route: 048
     Dates: start: 20140711
  9. FAMOTIDINE. [Concomitant]
     Active Substance: FAMOTIDINE
     Dosage: 10 MG, 2X/DAY
     Route: 048
     Dates: end: 20140617

REACTIONS (4)
  - Hypocalcaemia [Recovering/Resolving]
  - Vomiting [Recovered/Resolved]
  - Neutrophil count decreased [Recovered/Resolved]
  - Liver disorder [Recovered/Resolved]

NARRATIVE: CASE EVENT DATE: 20140521
